FAERS Safety Report 5039936-X (Version None)
Quarter: 2006Q2

REPORT INFORMATION
  Report Type: 
  Country: None (occurrence: None)
  Receive Date: 20060601
  Receipt Date: 20060109
  Transmission Date: 20061013
  Serious: No
  Sender: FDA-Public Use
  Company Number: 2005PV004988

PATIENT
  Age: 76 Year
  Sex: Male

DRUGS (3)
  1. BYETTA [Suspect]
     Indication: DIABETES MELLITUS NON-INSULIN-DEPENDENT
     Dosage: 5 MCG;BID;SC
     Route: 058
     Dates: start: 20050825
  2. COUMADIN [Concomitant]
  3. VITAMIN K [Concomitant]

REACTIONS (2)
  - DYSPEPSIA [None]
  - INTERNATIONAL NORMALISED RATIO INCREASED [None]
